FAERS Safety Report 10709409 (Version 2)
Quarter: 2015Q1

REPORT INFORMATION
  Report Type: Spontaneous
  Country: FR (occurrence: FR)
  Receive Date: 20150114
  Receipt Date: 20150224
  Transmission Date: 20150721
  Serious: Yes (Hospitalization)
  Sender: FDA-Public Use
  Company Number: FR-ROCHE-1520829

PATIENT
  Age: 49 Year
  Sex: Male

DRUGS (5)
  1. RIVOTRIL [Suspect]
     Active Substance: CLONAZEPAM
     Indication: ABDOMINAL PAIN
     Route: 048
  2. PREZISTA [Suspect]
     Active Substance: DARUNAVIR ETHANOLATE
     Indication: ABDOMINAL PAIN
     Route: 065
     Dates: end: 20141225
  3. TRUVADA [Suspect]
     Active Substance: EMTRICITABINE\TENOFOVIR DISOPROXIL FUMARATE
     Indication: ABDOMINAL PAIN
     Route: 048
     Dates: end: 20141224
  4. FLAGYL [Suspect]
     Active Substance: METRONIDAZOLE\METRONIDAZOLE HYDROCHLORIDE
     Indication: ABDOMINAL PAIN
     Route: 065
     Dates: start: 20141215, end: 20141222
  5. NORVIR [Suspect]
     Active Substance: RITONAVIR
     Indication: ABDOMINAL PAIN
     Route: 048
     Dates: end: 20141223

REACTIONS (1)
  - Pancreatitis necrotising [Recovering/Resolving]
